FAERS Safety Report 12640406 (Version 1)
Quarter: 2016Q3

REPORT INFORMATION
  Report Type: Spontaneous
  Country: US (occurrence: None)
  Receive Date: 20160809
  Receipt Date: 20160809
  Transmission Date: 20161109
  Serious: No
  Sender: FDA-Public Use
  Company Number: None

PATIENT
  Sex: Female

DRUGS (2)
  1. BUPROPION 150 MG [Suspect]
     Active Substance: BUPROPION
  2. ESTRADIOL 0.1 MG/GM [Suspect]
     Active Substance: ESTRADIOL
     Route: 067

REACTIONS (1)
  - Drug dispensed to wrong patient [None]

NARRATIVE: CASE EVENT DATE: 2016
